FAERS Safety Report 7546564-0 (Version None)
Quarter: 2011Q2

REPORT INFORMATION
  Report Type: 
  Country: None (occurrence: None)
  Receive Date: 20110614
  Receipt Date: 20110601
  Transmission Date: 20111010
  Serious: Yes (Disabling)
  Sender: FDA-Public Use
  Company Number: JP-ASTRAZENECA-2011SE24334

PATIENT
  Age: 32694 Day
  Sex: Male

DRUGS (6)
  1. CIPROFLOXACIN HCL [Concomitant]
     Route: 042
     Dates: start: 20110420
  2. IMMUNE GLOBULIN (HUMAN) [Suspect]
     Indication: INFECTION
     Route: 042
     Dates: start: 20110416, end: 20110418
  3. KAKODIN [Concomitant]
     Indication: SHOCK
     Dates: start: 20110415, end: 20110425
  4. FIRSTCIN [Suspect]
     Indication: INFECTION
     Route: 042
     Dates: start: 20110414, end: 20110416
  5. MEROPENEM [Suspect]
     Indication: URINARY TRACT INFECTION
     Route: 042
     Dates: start: 20110416, end: 20110420
  6. KAKODIN [Concomitant]
     Indication: HYPOTENSION
     Dates: start: 20110415, end: 20110425

REACTIONS (10)
  - LIVER DISORDER [None]
  - HYPOGLYCAEMIA [None]
  - DISSEMINATED INTRAVASCULAR COAGULATION [None]
  - ASPARTATE AMINOTRANSFERASE INCREASED [None]
  - PLATELET COUNT DECREASED [None]
  - BLOOD LACTATE DEHYDROGENASE INCREASED [None]
  - LOSS OF CONSCIOUSNESS [None]
  - ALANINE AMINOTRANSFERASE INCREASED [None]
  - SEPSIS [None]
  - URINE ABNORMALITY [None]
